FAERS Safety Report 14099736 (Version 1)
Quarter: 2017Q4

REPORT INFORMATION
  Report Type: Spontaneous
  Country: US (occurrence: US)
  Receive Date: 20171017
  Receipt Date: 20171017
  Transmission Date: 20180321
  Serious: No
  Sender: FDA-Public Use
  Company Number: US-US WORLDMEDS, LLC-USW201707-001109

PATIENT
  Sex: Male

DRUGS (1)
  1. XADAGO [Suspect]
     Active Substance: SAFINAMIDE MESYLATE

REACTIONS (4)
  - Dyskinesia [Unknown]
  - Restlessness [Unknown]
  - Diarrhoea [Unknown]
  - Feeling abnormal [Unknown]
